FAERS Safety Report 17859741 (Version 3)
Quarter: 2020Q3

REPORT INFORMATION
  Report Type: Spontaneous
  Country: US (occurrence: US)
  Receive Date: 20200604
  Receipt Date: 20200713
  Transmission Date: 20201103
  Serious: No
  Sender: FDA-Public Use
  Company Number: US-PFIZER INC-2020218093

PATIENT
  Age: 38 Year
  Sex: Female

DRUGS (2)
  1. XELJANZ XR [Suspect]
     Active Substance: TOFACITINIB CITRATE
     Indication: RHEUMATOID ARTHRITIS
     Dosage: 11 MG, DAILY
     Route: 048
     Dates: start: 202005
  2. XELJANZ [Suspect]
     Active Substance: TOFACITINIB CITRATE
     Indication: RHEUMATOID ARTHRITIS
     Dosage: 5 MG, 2X/DAY
     Dates: start: 202005, end: 202005

REACTIONS (7)
  - Acne [Unknown]
  - Speech disorder [Recovering/Resolving]
  - Condition aggravated [Unknown]
  - Fatigue [Unknown]
  - Pruritus [Unknown]
  - Dysarthria [Recovering/Resolving]
  - Seborrhoea [Unknown]

NARRATIVE: CASE EVENT DATE: 2020
